FAERS Safety Report 9587656 (Version 1)
Quarter: 2013Q4

REPORT INFORMATION
  Report Type: Spontaneous
  Country: US (occurrence: US)
  Receive Date: 20131003
  Receipt Date: 20131003
  Transmission Date: 20140711
  Serious: Yes (Other)
  Sender: FDA-Public Use
  Company Number: US-COVIDIEN/TYCO HEALTHCARE/MALLINCKRODT-T201304401

PATIENT
  Age: 67 Year
  Sex: Female

DRUGS (6)
  1. EXALGO EXTENDED RELEASE [Suspect]
     Indication: PAIN IN EXTREMITY
     Dosage: 32 MG, QD
     Route: 048
     Dates: start: 20130909, end: 20130909
  2. LYRICA [Concomitant]
     Dosage: 75 MG, TID
     Route: 048
     Dates: start: 201307
  3. METFORMIN [Concomitant]
     Indication: DIABETES MELLITUS
     Dosage: UNK
     Route: 048
  4. ATENOLOL [Concomitant]
     Indication: BLOOD PRESSURE
     Dosage: UNK
  5. CRESTOR [Concomitant]
     Indication: BLOOD CHOLESTEROL
     Dosage: UNK
     Route: 048
  6. FENTANYL [Concomitant]
     Dosage: 12 MG, UNK
     Dates: start: 20130904

REACTIONS (9)
  - Blood pressure increased [Unknown]
  - Chest discomfort [Unknown]
  - Nausea [Not Recovered/Not Resolved]
  - Vomiting [Not Recovered/Not Resolved]
  - Abdominal pain upper [Not Recovered/Not Resolved]
  - Decreased appetite [Not Recovered/Not Resolved]
  - Asthenia [Not Recovered/Not Resolved]
  - Dizziness [Not Recovered/Not Resolved]
  - Headache [Not Recovered/Not Resolved]
